FAERS Safety Report 14741891 (Version 3)
Quarter: 2018Q3

REPORT INFORMATION
  Report Type: Other
  Country: CA (occurrence: CA)
  Receive Date: 20180410
  Receipt Date: 20180702
  Transmission Date: 20181010
  Serious: Yes (Other)
  Sender: FDA-Public Use
  Company Number: CA-INTERCEPT-PMOCA2018000198

PATIENT

DRUGS (2)
  1. OCALIVA [Suspect]
     Active Substance: OBETICHOLIC ACID
     Indication: PRIMARY BILIARY CHOLANGITIS
     Dosage: 5 MG, QW
     Route: 048
     Dates: start: 20180130, end: 20180320
  2. URSO [Concomitant]
     Active Substance: URSODIOL
     Dosage: 500 MG, QD
     Route: 048

REACTIONS (7)
  - Joint swelling [Unknown]
  - Abdominal pain upper [Recovered/Resolved]
  - Model for end stage liver disease score increased [Unknown]
  - Hyperbilirubinaemia [Not Recovered/Not Resolved]
  - Coagulopathy [Not Recovered/Not Resolved]
  - Hepatic fibrosis [Not Recovered/Not Resolved]
  - Pancreatolithiasis [Unknown]

NARRATIVE: CASE EVENT DATE: 2018
